FAERS Safety Report 6121556-7 (Version None)
Quarter: 2009Q1

REPORT INFORMATION
  Report Type: 
  Country: None (occurrence: None)
  Receive Date: 20090317
  Receipt Date: 20090312
  Transmission Date: 20090719
  Serious: Yes (Death, Life-Threatening, Other)
  Sender: FDA-Public Use
  Company Number: JP-JNJFOC-20080904846

PATIENT
  Sex: Male
  Weight: 70 kg

DRUGS (20)
  1. DOXIL [Suspect]
     Route: 042
  2. DOXIL [Suspect]
     Route: 042
  3. DOXIL [Suspect]
     Route: 042
  4. DOXIL [Suspect]
     Route: 042
  5. DOXIL [Suspect]
     Route: 042
  6. DOXIL [Suspect]
     Indication: KAPOSI'S SARCOMA
     Route: 042
  7. BAKTAR [Suspect]
     Indication: PROPHYLAXIS
     Route: 048
  8. LAMIVUDINE [Concomitant]
     Indication: HIV INFECTION
     Route: 048
  9. ZERIT [Concomitant]
     Indication: HIV INFECTION
     Route: 048
  10. RITONAVIR [Concomitant]
     Indication: HIV INFECTION
     Route: 048
  11. EFAVIRENZ [Concomitant]
     Indication: HIV INFECTION
     Route: 048
  12. DENOSINE [Concomitant]
     Indication: CYTOMEGALOVIRUS INFECTION
     Route: 042
  13. CLARITHROMYCIN [Concomitant]
     Indication: PROPHYLAXIS
     Route: 048
  14. FILGRASTIM [Concomitant]
     Route: 042
  15. FILGRASTIM [Concomitant]
     Route: 042
  16. FILGRASTIM [Concomitant]
     Route: 042
  17. FILGRASTIM [Concomitant]
     Route: 042
  18. FILGRASTIM [Concomitant]
     Indication: GRANULOCYTOPENIA
     Route: 042
  19. CONCENTRATED HUMAN RED BLOOD CELLS [Concomitant]
     Indication: ANAEMIA
     Route: 042
  20. CONCENTRATED HUMAN BLOOD PLATELET [Concomitant]
     Indication: PLATELET COUNT DECREASED
     Route: 042

REACTIONS (4)
  - GRANULOCYTOPENIA [None]
  - INTERSTITIAL LUNG DISEASE [None]
  - KAPOSI'S SARCOMA [None]
  - PROTEIN-LOSING GASTROENTEROPATHY [None]
